FAERS Safety Report 4966981-2 (Version None)
Quarter: 2006Q2

REPORT INFORMATION
  Report Type: 
  Country: None (occurrence: None)
  Receive Date: 20060403
  Receipt Date: 20060321
  Transmission Date: 20061013
  Serious: Yes (Hospitalization, Other)
  Sender: FDA-Public Use
  Company Number: 2006039781

PATIENT
  Sex: Male
  Weight: 111.5849 kg

DRUGS (3)
  1. VIAGRA [Suspect]
     Indication: ERECTILE DYSFUNCTION
     Dosage: 50 MG
     Dates: start: 20040101
  2. VICODIN [Concomitant]
  3. BEXTRA [Concomitant]

REACTIONS (2)
  - ENZYME ABNORMALITY [None]
  - MYOCARDIAL INFARCTION [None]
